FAERS Safety Report 12853395 (Version 1)
Quarter: 2016Q4

REPORT INFORMATION
  Report Type: Spontaneous
  Country: JP (occurrence: JP)
  Receive Date: 20161017
  Receipt Date: 20161017
  Transmission Date: 20170207
  Serious: Yes (Hospitalization, Other)
  Sender: FDA-Public Use
  Company Number: JP-ACCORD-044832

PATIENT
  Age: 50 Year
  Sex: Male

DRUGS (5)
  1. CISPLATIN. [Suspect]
     Active Substance: CISPLATIN
     Indication: THYMOMA MALIGNANT RECURRENT
  2. ETOPOSIDE. [Suspect]
     Active Substance: ETOPOSIDE
     Indication: THYMOMA MALIGNANT RECURRENT
  3. PEMETREXED [Suspect]
     Active Substance: PEMETREXED
     Indication: THYMOMA MALIGNANT RECURRENT
     Dosage: THREE CYCLES
  4. PACLITAXEL/PACLITAXEL LIPOSOME [Suspect]
     Active Substance: PACLITAXEL
     Indication: THYMOMA MALIGNANT RECURRENT
  5. GEMCITABINE/GEMCITABINE HYDROCHLORIDE [Suspect]
     Active Substance: GEMCITABINE\GEMCITABINE HYDROCHLORIDE
     Indication: THYMOMA MALIGNANT RECURRENT

REACTIONS (3)
  - Blood bilirubin increased [Recovering/Resolving]
  - Autoimmune haemolytic anaemia [Recovering/Resolving]
  - Bone marrow failure [Recovering/Resolving]
